FAERS Safety Report 8201864-6 (Version None)
Quarter: 2012Q1

REPORT INFORMATION
  Report Type: 
  Country: None (occurrence: None)
  Receive Date: 20120312
  Receipt Date: 20120308
  Transmission Date: 20120608
  Serious: Yes (Death, Life-Threatening)
  Sender: FDA-Public Use
  Company Number: BE-ELI_LILLY_AND_COMPANY-BE201008002877

PATIENT
  Sex: Male
  Weight: 69.7 kg

DRUGS (14)
  1. TERRAMYCIN V CAP [Concomitant]
     Indication: EYE INFECTION
     Dates: start: 20100723
  2. PEMETREXED [Suspect]
     Indication: HEAD AND NECK CANCER
     Dosage: 500 MG/M2, OTHER (DAY ONE EVERY 21 DAYS)
     Route: 042
     Dates: start: 20100407
  3. MINOCYCLINE HCL [Concomitant]
     Indication: RASH
     Dates: start: 20100421
  4. CETUXIMAB [Suspect]
     Indication: HEAD AND NECK CANCER
     Dosage: 400 MG/M2 (LOADING DOSE ON DAY ONE OF CYCLE ONE)
     Route: 042
     Dates: start: 20100407
  5. VITAMIN B-12 [Concomitant]
     Indication: PROPHYLAXIS
  6. FOLIC ACID [Concomitant]
     Indication: PROPHYLAXIS
  7. ATROVENT [Concomitant]
     Indication: PROPHYLAXIS
     Dosage: UNK, UNK
     Dates: start: 20100527
  8. CETUXIMAB [Suspect]
     Dosage: 250 MG/M2, WEEKLY (1/W)
     Route: 042
  9. LYSOMUCIL [Concomitant]
     Indication: PROPHYLAXIS
     Dates: start: 20100325
  10. CISPLATIN [Suspect]
     Indication: HEAD AND NECK CANCER
     Dosage: 75 MG/M2, OTHER (DAY ONE EVERY 21 DAYS)
     Route: 042
     Dates: start: 20100407
  11. ZANTAC [Concomitant]
     Indication: PROPHYLAXIS
     Dates: start: 20100325
  12. DEXAMETHASONE [Concomitant]
     Indication: PROPHYLAXIS
  13. FRAXIPARINE [Concomitant]
     Indication: PROPHYLAXIS
     Dates: start: 20100629
  14. MOTILIUM [Concomitant]
     Indication: PROPHYLAXIS
     Dates: start: 20100603

REACTIONS (2)
  - RESPIRATORY FAILURE [None]
  - SEPTIC SHOCK [None]
